FAERS Safety Report 23153557 (Version 1)
Quarter: 2023Q4

REPORT INFORMATION
  Report Type: Spontaneous
  Country: US (occurrence: None)
  Receive Date: 20231106
  Receipt Date: 20231106
  Transmission Date: 20240109
  Serious: Yes (Life-Threatening, Hospitalization)
  Sender: FDA-Public Use
  Company Number: None

PATIENT
  Age: 83 Year
  Sex: Male
  Weight: 141.75 kg

DRUGS (2)
  1. XTANDI [Suspect]
     Active Substance: ENZALUTAMIDE
     Indication: Prostate cancer metastatic
     Dosage: FREQUENCY : DAILY;?
     Route: 048
     Dates: start: 20230929, end: 20231028
  2. XTANDI [Concomitant]
     Active Substance: ENZALUTAMIDE
     Dates: start: 20230929, end: 20231028

REACTIONS (1)
  - Herpes simplex encephalitis [None]

NARRATIVE: CASE EVENT DATE: 20231028
